FAERS Safety Report 11858780 (Version 2)
Quarter: 2016Q1

REPORT INFORMATION
  Report Type: Spontaneous
  Country: US (occurrence: US)
  Receive Date: 20151222
  Receipt Date: 20160122
  Transmission Date: 20160526
  Serious: Yes (Hospitalization)
  Sender: FDA-Public Use
  Company Number: US-BEH-2015056899

PATIENT
  Age: 44 Year
  Sex: Female
  Weight: 73 kg

DRUGS (9)
  1. HIZENTRA [Suspect]
     Active Substance: HUMAN IMMUNOGLOBULIN G
     Indication: ASTHMA
     Dosage: ADMINISTERED LOWER DOSE 2/WEEK, BETTER TOLERATED
     Route: 058
     Dates: start: 20141204
  2. HIZENTRA [Suspect]
     Active Substance: HUMAN IMMUNOGLOBULIN G
     Indication: IMMUNODEFICIENCY
     Dosage: ADMINISTERED LOWER DOSE 2/WEEK, BETTER TOLERATED
     Dates: start: 20141204
  3. DIPHENHYDRAMINE. [Concomitant]
     Active Substance: DIPHENHYDRAMINE
  4. VITAMIN D3 [Concomitant]
     Active Substance: CHOLECALCIFEROL
  5. ACETAMINOPHEN. [Concomitant]
     Active Substance: ACETAMINOPHEN
  6. EPIPEN [Concomitant]
     Active Substance: EPINEPHRINE
  7. HIZENTRA [Suspect]
     Active Substance: HUMAN IMMUNOGLOBULIN G
     Indication: NEUROPATHY PERIPHERAL
     Dosage: 1 GM 5 ML VIAL
     Route: 058
     Dates: start: 20141210
  8. PRAMIPEXOLE DIHYDROCHLORIDE. [Concomitant]
     Active Substance: PRAMIPEXOLE DIHYDROCHLORIDE
  9. METHYLPREDNISOLONE. [Concomitant]
     Active Substance: METHYLPREDNISOLONE

REACTIONS (2)
  - Injection [Recovered/Resolved]
  - Spinal cord disorder [Recovering/Resolving]

NARRATIVE: CASE EVENT DATE: 20141204
